FAERS Safety Report 10213746 (Version 1)
Quarter: 2014Q2

REPORT INFORMATION
  Report Type: Spontaneous
  Country: FR (occurrence: None)
  Receive Date: 20140530
  Receipt Date: 20140530
  Transmission Date: 20141212
  Serious: Yes (Hospitalization)
  Sender: FDA-Public Use
  Company Number: 2014FR0234

PATIENT
  Age: 85 Year
  Sex: Female

DRUGS (3)
  1. KINERET (ANAKINRA), NOT AVAILABLE [Suspect]
     Indication: SCHNITZLER^S SYNDROME
     Dosage: SUBCUTANEOUS.
     Dates: start: 200611
  2. CHONDROSULF (CHONTDORITIN SULFATE SODIUM) (CHONDROITIN SULFATE SODIUM [Concomitant]
  3. DESLORATADIN (DESLORATADINS DESLLORATIDINE) [Concomitant]

REACTIONS (2)
  - Dermatitis psoriasiform [None]
  - Intertrigo [None]
